FAERS Safety Report 6385007-X (Version None)
Quarter: 2009Q4

REPORT INFORMATION
  Report Type: 
  Country: None (occurrence: None)
  Receive Date: 20091002
  Receipt Date: 20090923
  Transmission Date: 20100525
  Serious: Yes (Hospitalization)
  Sender: FDA-Public Use
  Company Number: PHHY2009FR41556

PATIENT
  Sex: Male

DRUGS (5)
  1. VOLTAREN [Suspect]
     Indication: TENDONITIS
     Dosage: 75 MG, BID
     Route: 048
     Dates: start: 20090804, end: 20090814
  2. LOGIMAX [Concomitant]
     Dosage: UNK
  3. CRESTOR [Concomitant]
     Dosage: UNK
  4. TAMSULOSIN HCL [Concomitant]
     Dosage: UNK
  5. ESOMEPRAZOLE [Concomitant]
     Dosage: 40 MG, UNK
     Dates: start: 20090901

REACTIONS (5)
  - ANAEMIA [None]
  - ASTHENIA [None]
  - DIVERTICULUM INTESTINAL [None]
  - MELAENA [None]
  - PALLOR [None]
